FAERS Safety Report 14687681 (Version 1)
Quarter: 2018Q1

REPORT INFORMATION
  Report Type: Spontaneous
  Country: US (occurrence: US)
  Receive Date: 20180328
  Receipt Date: 20180328
  Transmission Date: 20180509
  Serious: No
  Sender: FDA-Public Use
  Company Number: US-TEVA-2018-US-865341

PATIENT

DRUGS (1)
  1. BUPROPION. [Suspect]
     Active Substance: BUPROPION
     Dates: start: 20180126

REACTIONS (3)
  - Affective disorder [Unknown]
  - Product substitution issue [Unknown]
  - General physical health deterioration [Unknown]
